FAERS Safety Report 10235208 (Version 1)
Quarter: 2014Q2

REPORT INFORMATION
  Report Type: Spontaneous
  Country: US (occurrence: None)
  Receive Date: 20140611
  Receipt Date: 20140611
  Transmission Date: 20141212
  Serious: Yes (Hospitalization)
  Sender: FDA-Public Use
  Company Number: FK201402209

PATIENT
  Age: 61 Year
  Sex: Female
  Weight: 62.3 kg

DRUGS (17)
  1. LEUCOVORIN CALCIUM [Suspect]
     Indication: PANCREATIC CARCINOMA
     Route: 042
     Dates: start: 20140206, end: 20140206
  2. FLUOROURACIL [Suspect]
     Indication: PANCREATIC CARCINOMA
     Route: 040
     Dates: start: 20140206, end: 20140206
  3. IRINOTECAN [Suspect]
     Indication: PANCREATIC CARCINOMA
     Route: 042
     Dates: start: 20140206, end: 20140206
  4. OXALIPLATIN [Suspect]
     Indication: PANCREATIC CARCINOMA
     Route: 042
     Dates: start: 20140206, end: 20140206
  5. INVESTIGATIONAL DRUG (INVESTIGATIONAL DRUG) (INVESTIGATIONAL DRUG) [Suspect]
     Indication: PANCREATIC CARCINOMA
     Route: 048
     Dates: start: 20140206, end: 20140206
  6. CYCLOBENZAPRINE (CYCLOBENZAPRINE) [Concomitant]
  7. DEXAMETHASONE (DEXAMETHASONE) [Concomitant]
  8. DULCOLAX (BISACODYL) [Concomitant]
  9. EXCEDRIN (VINCENTS /00110301/) [Concomitant]
  10. IMITREX (SUMATRIPTAN) [Concomitant]
  11. PRILOCAINE (PRILOCAINE) [Concomitant]
  12. LIDOCAINE (LIDOCAINE) [Concomitant]
  13. OMEPRAZOLE (OMEPRAZOLE) [Concomitant]
  14. ONDANSETRON (ONDANSETRON) [Concomitant]
  15. PROCHLORPERAZINE (PROCHLORPERAZINE) [Concomitant]
  16. SENNA (SENNA ALEXANDRINA) [Concomitant]
  17. SIMVASTATIN (SIMVASTATIN) [Concomitant]

REACTIONS (4)
  - Dehydration [None]
  - Nausea [None]
  - Vomiting [None]
  - Faeces soft [None]
